FAERS Safety Report 5214027-3 (Version None)
Quarter: 2007Q1

REPORT INFORMATION
  Report Type: 
  Country: None (occurrence: None)
  Receive Date: 20070122
  Receipt Date: 20070110
  Transmission Date: 20070707
  Serious: Yes (Death)
  Sender: FDA-Public Use
  Company Number: MX-ELI_LILLY_AND_COMPANY-MX200701002280

PATIENT
  Age: 36 Year
  Sex: Female
  Weight: 62 kg

DRUGS (4)
  1. ZYPREXA [Suspect]
     Indication: BIPOLAR DISORDER
     Dosage: 5 MG, UNKNOWN
     Route: 065
     Dates: start: 20061204, end: 20061223
  2. PROZAC [Suspect]
     Dosage: 20 MG, UNKNOWN
     Route: 065
     Dates: start: 20061204, end: 20061223
  3. VALPROATE SODIUM [Concomitant]
     Dosage: 800 MG, DAILY (1/D)
     Route: 048
     Dates: start: 19981119
  4. LITHIUM CARBONATE [Concomitant]
     Dosage: 900 MG, DAILY (1/D)
     Route: 048
     Dates: start: 19981119

REACTIONS (1)
  - COMPLETED SUICIDE [None]
